FAERS Safety Report 4530729-6 (Version None)
Quarter: 2004Q4

REPORT INFORMATION
  Report Type: 
  Country: None (occurrence: None)
  Receive Date: 20041217
  Receipt Date: 20041210
  Transmission Date: 20050328
  Serious: Yes (Death)
  Sender: FDA-Public Use
  Company Number: JP-GLAXOSMITHKLINE-B0361796A

PATIENT

DRUGS (1)
  1. PAXIL [Suspect]
     Route: 048

REACTIONS (1)
  - INTENTIONAL OVERDOSE [None]
